FAERS Safety Report 15408940 (Version 1)
Quarter: 2018Q3

REPORT INFORMATION
  Report Type: Spontaneous
  Country: CL (occurrence: CL)
  Receive Date: 20180920
  Receipt Date: 20180920
  Transmission Date: 20181010
  Serious: Yes (Other)
  Sender: FDA-Public Use
  Company Number: CL-GILEAD-2016-0246880

PATIENT
  Age: 11 Year
  Sex: Female

DRUGS (4)
  1. RALTEGRAVIR. [Concomitant]
     Active Substance: RALTEGRAVIR
     Indication: HIV INFECTION
     Dosage: 200 MG, BID
     Route: 065
  2. KALETRA [Concomitant]
     Active Substance: LOPINAVIR\RITONAVIR
     Indication: HIV INFECTION
     Dosage: 3.5 ML, BID
     Route: 065
  3. ABACAVIR. [Concomitant]
     Active Substance: ABACAVIR
     Indication: HIV INFECTION
     Dosage: 300 MG, BID
     Route: 065
  4. VIREAD [Suspect]
     Active Substance: TENOFOVIR DISOPROXIL FUMARATE
     Indication: HIV INFECTION
     Dosage: 300 MG, QD
     Route: 065

REACTIONS (5)
  - Osteoporosis [Unknown]
  - Multiple fractures [Recovering/Resolving]
  - Fanconi syndrome acquired [Recovered/Resolved]
  - Hypophosphataemic rickets [Recovering/Resolving]
  - Renal tubular dysfunction [Recovered/Resolved]
